FAERS Safety Report 4596868-9 (Version None)
Quarter: 2005Q1

REPORT INFORMATION
  Report Type: 
  Country: None (occurrence: None)
  Receive Date: 20050228
  Receipt Date: 20050214
  Transmission Date: 20050727
  Serious: Yes (Other)
  Sender: FDA-Public Use
  Company Number: 2005032999

PATIENT
  Age: 38 Year
  Sex: Female

DRUGS (2)
  1. VIRACEPT [Suspect]
     Indication: ACCIDENTAL EXPOSURE
     Dosage: ORAL
     Route: 048
  2. LAMIVUDINE AND ZIDOVUDINE [Suspect]
     Indication: ACCIDENTAL EXPOSURE
     Dosage: ORAL
     Route: 048

REACTIONS (1)
  - CYTOLYTIC HEPATITIS [None]
